FAERS Safety Report 10079274 (Version 3)
Quarter: 2014Q2

REPORT INFORMATION
  Report Type: Spontaneous
  Country: US (occurrence: US)
  Receive Date: 20140415
  Receipt Date: 20140418
  Transmission Date: 20141212
  Serious: Yes (Disabling, Other)
  Sender: FDA-Public Use
  Company Number: US-PFIZER INC-2014066780

PATIENT
  Age: 55 Year
  Sex: Male
  Weight: 78.91 kg

DRUGS (2)
  1. VIAGRA [Suspect]
     Indication: ERECTILE DYSFUNCTION
     Dosage: 100 MG, AS NEEDED
     Dates: start: 2012
  2. OXYCODONE [Concomitant]
     Indication: PAIN
     Dosage: 10 MG, 3X/DAY

REACTIONS (8)
  - Spinal fracture [Unknown]
  - Accident [Unknown]
  - Asthenia [Unknown]
  - Sleep disorder [Unknown]
  - Malaise [Unknown]
  - Gastroenteritis viral [Unknown]
  - Influenza [Unknown]
  - Insomnia [Unknown]
